FAERS Safety Report 9390395 (Version 1)
Quarter: 2013Q3

REPORT INFORMATION
  Report Type: Spontaneous
  Country: US (occurrence: None)
  Receive Date: 20130701
  Receipt Date: 20130701
  Transmission Date: 20140515
  Serious: Yes (Other)
  Sender: FDA-Public Use
  Company Number: 2013060057

PATIENT
  Age: 28 Year
  Sex: Female

DRUGS (1)
  1. MESALAMINE [Suspect]
     Indication: CROHN^S DISEASE

REACTIONS (5)
  - Pancreatitis acute [None]
  - Renal failure acute [None]
  - Microangiopathic haemolytic anaemia [None]
  - Haemolytic uraemic syndrome [None]
  - Thrombotic thrombocytopenic purpura [None]
